FAERS Safety Report 5677085-8 (Version None)
Quarter: 2008Q1

REPORT INFORMATION
  Report Type: 
  Country: None (occurrence: None)
  Receive Date: 20080324
  Receipt Date: 20080311
  Transmission Date: 20080703
  Serious: Yes (Other)
  Sender: FDA-Public Use
  Company Number: US-AMGEN-QUU269312

PATIENT
  Sex: Male

DRUGS (2)
  1. ENBREL [Suspect]
     Indication: RHEUMATOID ARTHRITIS
     Route: 058
     Dates: start: 20030101
  2. METHOTREXATE [Concomitant]
     Route: 048

REACTIONS (9)
  - ARTHRALGIA [None]
  - CHILLS [None]
  - FATIGUE [None]
  - HEADACHE [None]
  - NIGHT SWEATS [None]
  - NODULE ON EXTREMITY [None]
  - RESORPTION BONE INCREASED [None]
  - SPINAL OSTEOARTHRITIS [None]
  - TUBERCULIN TEST NEGATIVE [None]
